FAERS Safety Report 4300452-1 (Version None)
Quarter: 2004Q1

REPORT INFORMATION
  Report Type: 
  Country: None (occurrence: None)
  Receive Date: 20040218
  Receipt Date: 20040205
  Transmission Date: 20041129
  Serious: Yes (Other)
  Sender: FDA-Public Use
  Company Number: WAES 0401USA02029

PATIENT
  Age: 58 Year
  Sex: Male

DRUGS (6)
  1. ZOCOR [Suspect]
     Indication: HYPERLIPIDAEMIA
     Dosage: 5 MG/DAILY; 2.5 MG/DAILY/PO
     Route: 048
     Dates: start: 19990101, end: 20020414
  2. ZOCOR [Suspect]
     Indication: HYPERLIPIDAEMIA
     Dosage: 5 MG/DAILY; 2.5 MG/DAILY/PO
     Route: 048
     Dates: start: 19921203
  3. CAP TAMSULOSIN HYDROCHLORIDE [Suspect]
     Indication: BENIGN PROSTATIC HYPERPLASIA
     Dosage: 0.2/DAILY; PO, 0.4/DAILY; PO, 0.2/DAILY; PO
     Route: 048
     Dates: start: 19990125, end: 20000728
  4. CAP TAMSULOSIN HYDROCHLORIDE [Suspect]
     Indication: BENIGN PROSTATIC HYPERPLASIA
     Dosage: 0.2/DAILY; PO, 0.4/DAILY; PO, 0.2/DAILY; PO
     Route: 048
     Dates: start: 20000729, end: 20001122
  5. CAP TAMSULOSIN HYDROCHLORIDE [Suspect]
     Indication: BENIGN PROSTATIC HYPERPLASIA
     Dosage: 0.2/DAILY; PO, 0.4/DAILY; PO, 0.2/DAILY; PO
     Route: 048
     Dates: start: 20001123, end: 20010508
  6. [THERAPY UNSPECIFIED] [Concomitant]

REACTIONS (3)
  - CEREBRAL INFARCTION [None]
  - HYPERTENSION [None]
  - HYPERURICAEMIA [None]
